FAERS Safety Report 9048670 (Version 4)
Quarter: 2013Q2

REPORT INFORMATION
  Report Type: Report from Study
  Country: JP (occurrence: JP)
  Receive Date: 20130204
  Receipt Date: 20130404
  Transmission Date: 20140414
  Serious: Yes (Death, Life-Threatening, Other)
  Sender: FDA-Public Use
  Company Number: JP-PFIZER INC-2013018188

PATIENT
  Age: 80 Year
  Sex: Male
  Weight: 52 kg

DRUGS (9)
  1. FOSPHENYTOIN SODIUM [Suspect]
     Indication: PROPHYLAXIS
     Dosage: 15 MG/KG AT 12.5MG/MIN IN 0.9% PHYSIOLOGICAL SALINE
     Dates: start: 20121226, end: 20121226
  2. FOSPHENYTOIN SODIUM [Suspect]
     Dosage: 7.5 MG/KG AT 6.3MG/MIN IN 0.9% PHYSIOLOGICAL SALINE
     Dates: start: 20121227, end: 20121227
  3. FOSPHENYTOIN SODIUM [Suspect]
     Dosage: 7.5 MG/KG AT 6.3MG/MIN IN 0.9% PHYSIOLOGICAL SALINE
     Dates: start: 20121228, end: 20121228
  4. FOSPHENYTOIN SODIUM [Suspect]
     Dosage: 7.5 MG/KG AT 6.3MG/MIN IN 0.9% PHYSIOLOGICAL SALINE
     Dates: start: 20121229
  5. MODACIN [Concomitant]
     Indication: INFECTION
     Dosage: 3 G, UNK
     Route: 042
     Dates: start: 20121223, end: 20121227
  6. GASTER [Concomitant]
     Dosage: 40 MG, UNK
     Route: 042
     Dates: start: 20121221, end: 20121226
  7. VANCOMYCIN [Concomitant]
     Indication: INFECTION
     Dosage: 1 G, UNK
     Route: 042
     Dates: start: 20121225, end: 20121227
  8. GLYCEROL [Concomitant]
     Dosage: 40 ML, UNK
     Route: 042
     Dates: start: 20121226, end: 20121227
  9. OMEPRAL [Concomitant]
     Dosage: 40 MG, UNK
     Route: 042
     Dates: start: 20121226, end: 20121231

REACTIONS (4)
  - Platelet count decreased [Fatal]
  - Renal impairment [Not Recovered/Not Resolved]
  - Pleural effusion [Not Recovered/Not Resolved]
  - Hepatic function abnormal [Not Recovered/Not Resolved]
